FAERS Safety Report 11008516 (Version 2)
Quarter: 2015Q3

REPORT INFORMATION
  Report Type: Spontaneous
  Country: US (occurrence: US)
  Receive Date: 20150410
  Receipt Date: 20150710
  Transmission Date: 20151125
  Serious: No
  Sender: FDA-Public Use
  Company Number: US-TEVA-547791USA

PATIENT
  Sex: Female

DRUGS (2)
  1. LEVALBUTEROL. [Suspect]
     Active Substance: LEVALBUTEROL
     Indication: BRONCHOSPASM
     Dosage: 0.021%, 0.63 MG / 3 ML
     Route: 055
  2. BUDESONIDE. [Suspect]
     Active Substance: BUDESONIDE
     Indication: BRONCHOSPASM

REACTIONS (1)
  - Vision blurred [Unknown]
